FAERS Safety Report 5563299-4 (Version None)
Quarter: 2007Q4

REPORT INFORMATION
  Report Type: 
  Country: None (occurrence: None)
  Receive Date: 20071217
  Receipt Date: 20071207
  Transmission Date: 20080405
  Serious: Yes (Other)
  Sender: FDA-Public Use
  Company Number: JP-BRISTOL-MYERS SQUIBB COMPANY-14013551

PATIENT
  Age: 68 Year
  Sex: Female

DRUGS (9)
  1. ARIPIPRAZOLE [Suspect]
     Indication: SCHIZOPHRENIA, PARANOID TYPE
     Dosage: 18SEP07-18MG/DAY , 27SEP07-24MG/DAY, 29NOV07-12MG/DAY, 06DEC07-6MG/DAY
     Route: 048
     Dates: start: 20070906
  2. HALOPERIDOL [Concomitant]
     Indication: SCHIZOPHRENIA, PARANOID TYPE
     Dosage: 6SEP07 TO 26NOV07 -6MG, 27NOV07 TO 28NOV07-10MG, 29NOV07 TO CONTINUING -8MG
     Route: 048
     Dates: start: 20070517
  3. BIPERIDEN HYDROCHLORIDE TAB [Concomitant]
     Indication: EXTRAPYRAMIDAL DISORDER
     Route: 048
     Dates: start: 20070517
  4. MOSAPRIDE CITRATE [Concomitant]
     Route: 048
     Dates: start: 20070517
  5. LOXOPROFEN SODIUM [Concomitant]
     Route: 048
     Dates: start: 20070517
  6. FLUNITRAZEPAM [Concomitant]
     Indication: SCHIZOPHRENIA, PARANOID TYPE
     Route: 048
     Dates: start: 20070517
  7. SODIUM PICOSULFATE [Concomitant]
     Route: 048
     Dates: start: 20070517
  8. LEVOMEPROMAZINE MALEATE [Concomitant]
     Indication: SCHIZOPHRENIA
     Dosage: 20SEP07 TO 26SEP07- 10MG, 27NOV07 TO 29NOV07- 10MG, 30NOV TO CONT-15MG
     Route: 048
     Dates: start: 20070920
  9. RISPERIDONE [Concomitant]
     Indication: SCHIZOPHRENIA
     Dosage: 20SEP07 TO 21SEP07 - 3MG; 22SEP07 TO 25SEP07 - 2MG; 26SEP07 TO 27SEP07 - 1MG.
     Route: 048
     Dates: start: 20070920

REACTIONS (2)
  - DELUSION [None]
  - HALLUCINATION [None]
